FAERS Safety Report 16881100 (Version 1)
Quarter: 2019Q4

REPORT INFORMATION
  Report Type: Report from Study
  Country: DE (occurrence: DE)
  Receive Date: 20191003
  Receipt Date: 20191003
  Transmission Date: 20200122
  Serious: Yes (Hospitalization)
  Sender: FDA-Public Use
  Company Number: DE-ROCHE-2417750

PATIENT
  Age: 81 Year
  Weight: 48 kg

DRUGS (5)
  1. BEVACIZUMAB. [Suspect]
     Active Substance: BEVACIZUMAB
     Indication: COLORECTAL CANCER
     Dosage: DATE OF LAST DOSE OF BEVACIZUMAB PRIOR TO SAE: 05/AUG/2014.
     Route: 042
     Dates: start: 20131126
  2. NOVAMIN [PROCHLORPERAZINE] [Concomitant]
     Route: 065
     Dates: end: 20140902
  3. RAMIPRIL. [Concomitant]
     Active Substance: RAMIPRIL
     Route: 065
  4. CAPECITABINE. [Suspect]
     Active Substance: CAPECITABINE
     Indication: COLORECTAL CANCER
     Dosage: DATE OF LAST DOSE OF CAPECITABINE PRIOR TO SAE : 18/AUG/2014
     Route: 048
     Dates: start: 20131126
  5. METOPROLOL. [Concomitant]
     Active Substance: METOPROLOL
     Route: 065

REACTIONS (1)
  - Atrial fibrillation [Recovered/Resolved]

NARRATIVE: CASE EVENT DATE: 20140820
